FAERS Safety Report 19622570 (Version 1)
Quarter: 2021Q3

REPORT INFORMATION
  Report Type: Spontaneous
  Country: FI (occurrence: FI)
  Receive Date: 20210728
  Receipt Date: 20210728
  Transmission Date: 20211014
  Serious: Yes (Other)
  Sender: FDA-Public Use
  Company Number: FI-BAYER-2021-179538

PATIENT
  Age: 27 Year
  Sex: Female

DRUGS (1)
  1. JAYDESS [Suspect]
     Active Substance: LEVONORGESTREL
     Indication: CONTRACEPTION
     Dosage: 14 ?G PER DAY, CONTINUOUSLY
     Route: 015
     Dates: start: 202007

REACTIONS (2)
  - Intra-abdominal haemorrhage [Unknown]
  - Ectopic pregnancy with contraceptive device [Unknown]

NARRATIVE: CASE EVENT DATE: 20210624
